FAERS Safety Report 6211874-6 (Version None)
Quarter: 2009Q2

REPORT INFORMATION
  Report Type: 
  Country: None (occurrence: None)
  Receive Date: 20090529
  Receipt Date: 20090519
  Transmission Date: 20091009
  Serious: Yes (Hospitalization)
  Sender: FDA-Public Use
  Company Number: 1-18481174

PATIENT
  Sex: Female
  Weight: 47.6277 kg

DRUGS (2)
  1. FENTANYL-50 [Suspect]
     Indication: OSTEOARTHRITIS
     Dosage: 50 MCG/HR EVERY 72 HR, TRANSDERMAL
     Route: 062
     Dates: start: 20090506, end: 20090515
  2. FENTANYL-50 [Suspect]
     Indication: PAIN
     Dosage: 50 MCG/HR EVERY 72 HR, TRANSDERMAL
     Route: 062
     Dates: start: 20090506, end: 20090515

REACTIONS (3)
  - INCREASED UPPER AIRWAY SECRETION [None]
  - PAIN [None]
  - PRODUCT SUBSTITUTION ISSUE [None]
